FAERS Safety Report 8273509-0 (Version None)
Quarter: 2012Q2

REPORT INFORMATION
  Report Type: 
  Country: None (occurrence: None)
  Receive Date: 20120409
  Receipt Date: 20120409
  Transmission Date: 20120825
  Serious: No
  Sender: FDA-Public Use
  Company Number: None

PATIENT
  Sex: Male
  Weight: 155.5838 kg

DRUGS (16)
  1. LUNESTA [Concomitant]
  2. MULTAQ [Concomitant]
  3. LIPITOR [Concomitant]
  4. METFORMIN HCL [Concomitant]
  5. CLARINEX [Concomitant]
  6. MULTI-VITAMIN [Concomitant]
  7. LASIX [Concomitant]
  8. POTASSIUM CHLORIDE [Concomitant]
  9. ASPIRIN [Concomitant]
  10. MULTAQ [Suspect]
     Indication: ATRIAL FIBRILLATION
     Dosage: 400MG BID PO -} 1 DOSE WITH AM MEAL 1 DOSE WITH PM MEAL
     Route: 048
     Dates: start: 20100129, end: 20120301
  11. LISINOPRIL [Concomitant]
  12. METOPROLOL SUCCINATE EXTENDED RELEASE [Concomitant]
  13. WARFARIN SODIUM [Concomitant]
  14. COLCRYS [Concomitant]
  15. NASACORT AQ [Concomitant]
  16. SPIRONOLACTONE [Concomitant]

REACTIONS (2)
  - ALANINE AMINOTRANSFERASE INCREASED [None]
  - ASPARTATE AMINOTRANSFERASE INCREASED [None]
